FAERS Safety Report 8228792-4 (Version None)
Quarter: 2012Q1

REPORT INFORMATION
  Report Type: 
  Country: None (occurrence: None)
  Receive Date: 20120322
  Receipt Date: 20120313
  Transmission Date: 20120608
  Serious: Yes (Other)
  Sender: FDA-Public Use
  Company Number: US-GLAXOSMITHKLINE-A0969658A

PATIENT
  Sex: Female

DRUGS (8)
  1. SPIRIVA [Concomitant]
  2. PROAIR HFA [Concomitant]
  3. COMBIVENT [Concomitant]
  4. VITAMIN TAB [Concomitant]
  5. ADVAIR DISKUS 100/50 [Suspect]
     Indication: CHRONIC OBSTRUCTIVE PULMONARY DISEASE
     Dosage: 1PUFF TWICE PER DAY
     Route: 055
  6. PREDNISONE TAB [Concomitant]
  7. TIMOLOL MALEATE [Concomitant]
  8. ANTIBIOTICS [Concomitant]

REACTIONS (4)
  - VISION BLURRED [None]
  - MACULAR DEGENERATION [None]
  - GLAUCOMA [None]
  - DYSPHONIA [None]
